FAERS Safety Report 6343921-5 (Version None)
Quarter: 2009Q3

REPORT INFORMATION
  Report Type: 
  Country: None (occurrence: None)
  Receive Date: 20090908
  Receipt Date: 20090827
  Transmission Date: 20100115
  Serious: Yes (Hospitalization, Other)
  Sender: FDA-Public Use
  Company Number: US-PFIZER INC-2009216952

PATIENT
  Sex: Female
  Weight: 73.923 kg

DRUGS (5)
  1. CELEBREX [Suspect]
     Indication: MIGRAINE
     Dosage: 200 MG, 1X/DAY, AS NEEDED
     Route: 048
     Dates: start: 20070101, end: 20090101
  2. CELEBREX [Suspect]
     Indication: MYOSITIS
  3. CELEBREX [Suspect]
     Indication: MYALGIA
  4. LOESTRIN 1.5/30 [Concomitant]
     Dosage: UNK
  5. ACIPHEX [Concomitant]
     Dosage: UNK

REACTIONS (2)
  - SWOLLEN TONGUE [None]
  - URTICARIA [None]
